FAERS Safety Report 7459476-8 (Version None)
Quarter: 2011Q2

REPORT INFORMATION
  Report Type: 
  Country: None (occurrence: None)
  Receive Date: 20110505
  Receipt Date: 20110427
  Transmission Date: 20111010
  Serious: Yes (Other)
  Sender: FDA-Public Use
  Company Number: AR-AMGEN-ARGSP2011017058

PATIENT
  Age: 66 Year
  Sex: Female
  Weight: 67 kg

DRUGS (3)
  1. ENBREL [Suspect]
     Indication: RHEUMATOID ARTHRITIS
     Dosage: 50 MG, WEEKLY
     Route: 058
     Dates: start: 20080101, end: 20100901
  2. ENALAPRIL [Concomitant]
     Dosage: UNK
     Route: 048
  3. ALPRAZOLAM [Concomitant]
     Dosage: UNK
     Route: 048
     Dates: end: 20110301

REACTIONS (3)
  - HYPERTENSIVE CRISIS [None]
  - CARDIOMEGALY [None]
  - ARTHRALGIA [None]
